FAERS Safety Report 8805190 (Version 1)
Quarter: 2012Q4

REPORT INFORMATION
  Report Type: Spontaneous
  Country: US (occurrence: None)
  Receive Date: 20120919
  Receipt Date: 20120919
  Transmission Date: 20130627
  Serious: Yes (Other)
  Sender: FDA-Public Use
  Company Number: None

PATIENT
  Age: 33 Year
  Sex: Female

DRUGS (1)
  1. MORPHINE SULFATE [Suspect]
     Indication: EPIDURAL ANALGESIA
     Dates: start: 20120928, end: 20120928

REACTIONS (3)
  - Poor quality drug administered [None]
  - Product container issue [None]
  - Product container issue [None]
